FAERS Safety Report 13630072 (Version 1)
Quarter: 2017Q2

REPORT INFORMATION
  Report Type: Spontaneous
  Country: US (occurrence: US)
  Receive Date: 20170531
  Receipt Date: 20170531
  Transmission Date: 20170830
  Serious: No
  Sender: FDA-Public Use
  Company Number: US-ASTELLAS-1276223

PATIENT
  Sex: Female

DRUGS (1)
  1. TARCEVA [Suspect]
     Active Substance: ERLOTINIB HYDROCHLORIDE
     Indication: LUNG CARCINOMA CELL TYPE UNSPECIFIED STAGE IV
     Route: 048
     Dates: start: 20130610

REACTIONS (7)
  - Swelling face [Recovering/Resolving]
  - Nail infection [Unknown]
  - Blood blister [Unknown]
  - Skin reaction [Unknown]
  - Rash [Recovering/Resolving]
  - Hyperchlorhydria [Not Recovered/Not Resolved]
  - Eye swelling [Unknown]
